FAERS Safety Report 18384853 (Version 1)
Quarter: 2020Q4

REPORT INFORMATION
  Report Type: Spontaneous
  Country: ES (occurrence: ES)
  Receive Date: 20201014
  Receipt Date: 20201014
  Transmission Date: 20210114
  Serious: Yes (Hospitalization)
  Sender: FDA-Public Use
  Company Number: NVSC2020ES271592

PATIENT
  Age: 70 Year
  Sex: Male

DRUGS (1)
  1. VOTRIENT [Suspect]
     Active Substance: PAZOPANIB HYDROCHLORIDE
     Indication: RENAL CANCER
     Dosage: 600 MG, Q24H
     Route: 048
     Dates: start: 20200202, end: 20200608

REACTIONS (5)
  - Condition aggravated [Recovering/Resolving]
  - Chronic kidney disease [Recovering/Resolving]
  - Azotaemia [Recovering/Resolving]
  - Hypertension [Recovering/Resolving]
  - Diarrhoea [Unknown]

NARRATIVE: CASE EVENT DATE: 202002
